FAERS Safety Report 9540370 (Version 1)
Quarter: 2013Q3

REPORT INFORMATION
  Report Type: Spontaneous
  Country: US (occurrence: US)
  Receive Date: 20130920
  Receipt Date: 20130920
  Transmission Date: 20140515
  Serious: Yes (Hospitalization)
  Sender: FDA-Public Use
  Company Number: US-ROCHE-1276835

PATIENT
  Sex: Female

DRUGS (3)
  1. HERCEPTIN [Suspect]
     Indication: BREAST CANCER STAGE I
     Route: 065
  2. CARBOPLATIN [Suspect]
     Indication: BREAST CANCER STAGE I
     Route: 065
  3. TAXOTERE [Suspect]
     Indication: BREAST CANCER STAGE I
     Route: 065

REACTIONS (10)
  - Neutropenia [Unknown]
  - Urticaria [Unknown]
  - Hypotension [Unknown]
  - Wound infection [Unknown]
  - Oropharyngeal pain [Unknown]
  - Pyrexia [Unknown]
  - Nausea [Unknown]
  - Dizziness [Unknown]
  - Dizziness [Unknown]
  - Chills [Unknown]
